FAERS Safety Report 6366774-8 (Version None)
Quarter: 2009Q3

REPORT INFORMATION
  Report Type: 
  Country: None (occurrence: None)
  Receive Date: 20090921
  Receipt Date: 20090911
  Transmission Date: 20100115
  Serious: Yes (Life-Threatening, Hospitalization, Disabling, Other)
  Sender: FDA-Public Use
  Company Number: BR-ABBOTT-08P-020-0439512-00

PATIENT
  Sex: Male
  Weight: 76 kg

DRUGS (10)
  1. HUMIRA [Suspect]
     Indication: RHEUMATOID ARTHRITIS
     Route: 058
     Dates: start: 20071126
  2. SIMVASTATIN [Concomitant]
     Indication: DRUG USE FOR UNKNOWN INDICATION
     Route: 048
  3. LEFLUNOMIDE [Concomitant]
     Indication: RHEUMATOID ARTHRITIS
  4. METOPROLOL TARTRATE [Concomitant]
     Indication: HYPERTENSION
     Route: 048
     Dates: end: 20080123
  5. UNKNOWN MEDICATION [Concomitant]
     Indication: HYPERTENSION
     Route: 048
     Dates: end: 20080118
  6. ENDOFOLIN [Concomitant]
     Indication: IMMUNODEFICIENCY
     Route: 048
     Dates: end: 20071201
  7. SERUM + UNKNOWN MEDICATION [Concomitant]
     Indication: SLEEP DISORDER THERAPY
  8. SERUM + UNKNOWN MEDICATION [Concomitant]
     Indication: RELAXATION THERAPY
  9. NIFEDIPINE [Concomitant]
     Indication: DRUG USE FOR UNKNOWN INDICATION
     Route: 048
  10. ASPIRIN [Concomitant]
     Indication: TACHYCARDIA
     Route: 048

REACTIONS (4)
  - HYPERTENSION [None]
  - ISCHAEMIC STROKE [None]
  - MOVEMENT DISORDER [None]
  - SPEECH DISORDER [None]
